FAERS Safety Report 12944901 (Version 1)
Quarter: 2016Q4

REPORT INFORMATION
  Report Type: Spontaneous
  Country: TW (occurrence: TW)
  Receive Date: 20161116
  Receipt Date: 20161116
  Transmission Date: 20170207
  Serious: Yes (Hospitalization, Other)
  Sender: FDA-Public Use
  Company Number: TW-BAXTER-2016BAX054748

PATIENT
  Age: 46 Year
  Sex: Female
  Weight: 45.2 kg

DRUGS (2)
  1. DIANEAL LOW CALCIUM PERITONEAL DIALYSIS SOLUTION WITH DEXTROSE [Suspect]
     Active Substance: CALCIUM CHLORIDE\DEXTROSE\MAGNESIUM CHLORIDE\SODIUM CHLORIDE\SODIUM LACTATE
     Indication: PERITONEAL DIALYSIS
     Dosage: 1500 ML EACH TIME
     Route: 033
     Dates: start: 2016
  2. DIANEAL LOW CALCIUM PERITONEAL DIALYSIS SOLUTION WITH DEXTROSE [Suspect]
     Active Substance: CALCIUM CHLORIDE\DEXTROSE\MAGNESIUM CHLORIDE\SODIUM CHLORIDE\SODIUM LACTATE
     Indication: CHRONIC KIDNEY DISEASE
     Route: 033
     Dates: end: 2016

REACTIONS (5)
  - Wheezing [Recovered/Resolved]
  - Pleural effusion [Recovered/Resolved]
  - Diaphragmatic rupture [Recovered/Resolved]
  - Disease recurrence [Recovered/Resolved]
  - Pleuroperitoneal communication [Recovered/Resolved]

NARRATIVE: CASE EVENT DATE: 2016
